FAERS Safety Report 16038090 (Version 1)
Quarter: 2019Q1

REPORT INFORMATION
  Report Type: Spontaneous
  Country: GB (occurrence: GB)
  Receive Date: 20190305
  Receipt Date: 20190305
  Transmission Date: 20190418
  Serious: Yes (Disabling, Other)
  Sender: FDA-Public Use
  Company Number: GB-PFIZER INC-2019037107

PATIENT
  Age: 69 Year
  Sex: Female

DRUGS (15)
  1. DIAZEPAM. [Concomitant]
     Active Substance: DIAZEPAM
     Dosage: 2 MG, 2X/DAY (FOR LAST FOUR YEARS)
  2. DOCUSATE [Concomitant]
     Active Substance: DOCUSATE
     Dosage: 2 DF, 2X/DAY (120 CAPSULE TAKE 2 TWICE DAILY WHEN NEEDED)
  3. HYDROXOCOBALAMIN [Concomitant]
     Active Substance: HYDROXOCOBALAMIN
     Dosage: UNK UNK, EVERY 3 MONTHS (1 AMPOULE)
  4. VENTOLIN [Concomitant]
     Active Substance: ALBUTEROL SULFATE
     Dosage: UNK (1 X 200 DOSE INHALE 2 DOSES AS NEEDED)
  5. FOSTAIR [Concomitant]
     Active Substance: BECLOMETHASONE\FORMOTEROL
     Dosage: UNK UNK, 1X/DAY ( 100 MICROGRAMS/DOSE/6 MICROGRAMS/DOSE INHALER ONE PUFF TO BE INHALED TWICE A DAY.
  6. GABAPENTIN. [Concomitant]
     Active Substance: GABAPENTIN
     Dosage: 400 MG, 1X/DAY (STRENGHT: 100MG, 300MG ONE TO BE TAKEN AT NIGHT (TOTAL DOSE 400 MG) 56 CAPSULE
  7. NITRAZEPAM [Concomitant]
     Active Substance: NITRAZEPAM
     Dosage: UNK (12 TABLET, ONE TO BE TAKEN AT NIGHT AS AND WHEN REQUIRED (ONLY NEEDING MAX 3/MONTH)
  8. RANITIDINE. [Concomitant]
     Active Substance: RANITIDINE
     Dosage: UNK (60 TABLET TAKE ONE NOCTE)
  9. SERTRALINE HCL [Suspect]
     Active Substance: SERTRALINE HYDROCHLORIDE
     Indication: ANXIETY
  10. LEVOTHYROXINE. [Concomitant]
     Active Substance: LEVOTHYROXINE
     Dosage: UNK, 1X/DAY (56 TABLET ONE TO BE TAKEN EACH DAY)
  11. ROSUVASTATIN. [Concomitant]
     Active Substance: ROSUVASTATIN
     Dosage: UNK UNK, 1X/DAY (56 TABLET TAKE 1 TABLET AT NIGHT)
  12. SERTRALINE HCL [Suspect]
     Active Substance: SERTRALINE HYDROCHLORIDE
     Indication: DEPRESSION
     Dosage: 100 MG, 1X/DAY (50 MG + 100 MG)
     Route: 048
     Dates: start: 20181129, end: 20190104
  13. BISACODYL. [Concomitant]
     Active Substance: BISACODYL
     Dosage: UNK UNK, AS NEEDED (40 TABLET TAKE TWO AT NIGHT AS NEEDED)
  14. PARACETAMOL [Concomitant]
     Active Substance: ACETAMINOPHEN
     Dosage: UNK (100 TABLET 1-2 QDS PRN, MAXIMUM 1 PARACETAMOL CONTAINING TABLETS TO BE TAKEN IN A 24 HOUR))
  15. ZAPAIN [Concomitant]
     Active Substance: ACETAMINOPHEN\CODEINE PHOSPHATE
     Dosage: UNK UNK, 4X/DAY (30 MG/500 MG 112 TABLET ONE OR TWO TO BE TAKEN 4 TIMES A DAY WHEN REQUIRED)

REACTIONS (5)
  - Nausea [Recovered/Resolved]
  - Diarrhoea [Recovered/Resolved]
  - Diabetes mellitus [Unknown]
  - Abdominal pain upper [Recovered/Resolved]
  - Frequent bowel movements [Recovered/Resolved]

NARRATIVE: CASE EVENT DATE: 201812
